FAERS Safety Report 13022863 (Version 1)
Quarter: 2016Q4

REPORT INFORMATION
  Report Type: Spontaneous
  Country: DK (occurrence: DK)
  Receive Date: 20161213
  Receipt Date: 20161213
  Transmission Date: 20170207
  Serious: Yes (Hospitalization, Other)
  Sender: FDA-Public Use
  Company Number: DK-GLAXOSMITHKLINE-DK2016179723

PATIENT
  Sex: Female

DRUGS (1)
  1. LAMICTAL [Suspect]
     Active Substance: LAMOTRIGINE
     Indication: BIPOLAR DISORDER
     Dosage: UNK
     Route: 048
     Dates: start: 2014, end: 2014

REACTIONS (6)
  - Suicidal ideation [Unknown]
  - Irritability [Unknown]
  - Sleep disorder [Unknown]
  - Depressive symptom [Unknown]
  - Impulsive behaviour [Unknown]
  - Anxiety [Unknown]
